FAERS Safety Report 5314218-7 (Version None)
Quarter: 2007Q2

REPORT INFORMATION
  Report Type: 
  Country: None (occurrence: None)
  Receive Date: 20070426
  Receipt Date: 20070413
  Transmission Date: 20071010
  Serious: Yes (Hospitalization)
  Sender: FDA-Public Use
  Company Number: B0466706A

PATIENT
  Age: 39 Year
  Sex: Female

DRUGS (2)
  1. FLOVENT [Suspect]
     Indication: ASTHMA
     Dosage: INHALED
     Route: 055
  2. PROTON PUMP INHIBITORS [Concomitant]

REACTIONS (4)
  - COUGH [None]
  - ORAL INTAKE REDUCED [None]
  - OROPHARYNGITIS FUNGAL [None]
  - PHARYNGOLARYNGEAL PAIN [None]
